FAERS Safety Report 21100955 (Version 2)
Quarter: 2022Q3

REPORT INFORMATION
  Report Type: Spontaneous
  Country: CN (occurrence: None)
  Receive Date: 20220719
  Receipt Date: 20220726
  Transmission Date: 20221027
  Serious: Yes (Other)
  Sender: FDA-Public Use
  Company Number: 2022A255784

PATIENT
  Age: 67 Year
  Sex: Male

DRUGS (5)
  1. DURVALUMAB [Suspect]
     Active Substance: DURVALUMAB
     Indication: Squamous cell carcinoma of lung
     Dosage: FOUR CYCLES (500MG)
     Route: 042
  2. METHYLPREDNISOLONE [Concomitant]
     Active Substance: METHYLPREDNISOLONE
     Indication: Inflammation
     Dosage: 40MG, ONCE PER DAY
     Route: 042
  3. METHYLPREDNISOLONE [Concomitant]
     Active Substance: METHYLPREDNISOLONE
     Indication: Inflammation
     Dosage: 20MG, ONCE PER DAY
     Route: 048
  4. MEROPENEM [Concomitant]
     Active Substance: MEROPENEM
     Indication: Infection
     Dosage: 1.0 G, Q8H
     Route: 041
  5. FAROENEM [Concomitant]
     Indication: Infection
     Dosage: 150MG, Q8H
     Route: 048

REACTIONS (2)
  - Empyema [Unknown]
  - Myocarditis [Recovered/Resolved]
